FAERS Safety Report 4873093-5 (Version None)
Quarter: 2005Q4

REPORT INFORMATION
  Report Type: 
  Country: None (occurrence: None)
  Receive Date: 20051201
  Receipt Date: 20050817
  Transmission Date: 20060501
  Serious: No
  Sender: FDA-Public Use
  Company Number: 2005PV001247

PATIENT
  Age: 56 Year
  Sex: Female
  Weight: 70.7611 kg

DRUGS (17)
  1. BYETTA [Suspect]
     Indication: DIABETES MELLITUS NON-INSULIN-DEPENDENT
     Dosage: SEE IMAGE
     Route: 058
     Dates: start: 20050713, end: 20050812
  2. BYETTA [Suspect]
     Indication: DIABETES MELLITUS NON-INSULIN-DEPENDENT
     Dosage: SEE IMAGE
     Route: 058
     Dates: start: 20050812
  3. METFORMIN HCL [Concomitant]
  4. GLYBURIDE [Concomitant]
  5. VYTORIN [Concomitant]
  6. LOVASTATIN [Concomitant]
  7. LISINOPRIL [Concomitant]
  8. LEVOTHROID [Concomitant]
  9. ASPIRIN [Concomitant]
  10. ENBREL [Concomitant]
  11. FOLTX [Concomitant]
  12. METHOTREXATE [Concomitant]
  13. CALCIUM + VITAMIN D [Concomitant]
  14. BLACK COHOSH [Concomitant]
  15. MULTIVITAMIN [Concomitant]
  16. SOY [Concomitant]
  17. BELLADONNA [Concomitant]

REACTIONS (5)
  - BLOOD GLUCOSE DECREASED [None]
  - DECREASED APPETITE [None]
  - NAUSEA [None]
  - VOMITING [None]
  - WEIGHT DECREASED [None]
